FAERS Safety Report 23225957 (Version 1)
Quarter: 2023Q4

REPORT INFORMATION
  Report Type: Spontaneous
  Country: US (occurrence: US)
  Receive Date: 20231124
  Receipt Date: 20231124
  Transmission Date: 20240110
  Serious: No
  Sender: FDA-Public Use
  Company Number: US-OPELLA-2023OHG016533

PATIENT

DRUGS (1)
  1. SELSUN BLUE NATURALS ITCHY, DRY SCALP [Suspect]
     Active Substance: SALICYLIC ACID
     Indication: Product used for unknown indication
     Route: 061

REACTIONS (2)
  - Product use issue [Unknown]
  - No adverse event [Unknown]
